FAERS Safety Report 16231427 (Version 3)
Quarter: 2020Q1

REPORT INFORMATION
  Report Type: Report from Study
  Country: CA (occurrence: CA)
  Receive Date: 20190424
  Receipt Date: 20200325
  Transmission Date: 20200409
  Serious: Yes (Hospitalization, Other)
  Sender: FDA-Public Use
  Company Number: CA-AMGEN-CANSP2019061096

PATIENT
  Age: 67 Year
  Sex: Female
  Weight: 60 kg

DRUGS (3)
  1. CALCIUM [Concomitant]
     Active Substance: CALCIUM
     Dosage: UNK
     Dates: end: 20190408
  2. VITAMIN D [COLECALCIFEROL] [Concomitant]
     Active Substance: CHOLECALCIFEROL
  3. PROLIA [Suspect]
     Active Substance: DENOSUMAB
     Indication: OSTEOPOROSIS POSTMENOPAUSAL
     Dosage: 60 MILLIGRAM PER MILLILITRE, Q6MO
     Route: 065

REACTIONS (6)
  - Meningioma [Unknown]
  - Arthralgia [Unknown]
  - Cerebrovascular accident [Unknown]
  - Musculoskeletal pain [Unknown]
  - Muscular weakness [Unknown]
  - Bone pain [Unknown]

NARRATIVE: CASE EVENT DATE: 2016
